FAERS Safety Report 16481222 (Version 5)
Quarter: 2019Q3

REPORT INFORMATION
  Report Type: Spontaneous
  Country: GR (occurrence: GR)
  Receive Date: 20190626
  Receipt Date: 20190809
  Transmission Date: 20191004
  Serious: Yes (Life-Threatening, Hospitalization)
  Sender: FDA-Public Use
  Company Number: GR-CELLTRION INC.-2019GR022239

PATIENT

DRUGS (4)
  1. ZIRCOS [Concomitant]
     Dosage: 5 MG, 1X/DAY
     Dates: start: 20190604
  2. LECALCIF [Concomitant]
     Active Substance: CHOLECALCIFEROL
     Dosage: 1 DF, WEEKLY
  3. EFEXOR [Concomitant]
     Active Substance: VENLAFAXINE HYDROCHLORIDE
     Dosage: 75 MG, 1X/DAY
  4. INFLECTRA [Suspect]
     Active Substance: INFLIXIMAB-DYYB
     Indication: PSORIATIC ARTHROPATHY
     Dosage: 500 MG, EVERY 8 WEEKS
     Route: 042
     Dates: start: 20180717

REACTIONS (5)
  - Off label use [Unknown]
  - Ischaemic stroke [Recovering/Resolving]
  - Cerebral haematoma [Recovering/Resolving]
  - Psychotic disorder [Recovering/Resolving]
  - Depressed level of consciousness [Recovered/Resolved with Sequelae]

NARRATIVE: CASE EVENT DATE: 20180717
